FAERS Safety Report 4459414-6 (Version None)
Quarter: 2004Q3

REPORT INFORMATION
  Report Type: 
  Country: None (occurrence: None)
  Receive Date: 20040927
  Receipt Date: 20040921
  Transmission Date: 20050211
  Serious: Yes (Other)
  Sender: FDA-Public Use
  Company Number: US-GLAXOSMITHKLINE-A0527175A

PATIENT
  Sex: Female

DRUGS (4)
  1. LAMICTAL [Suspect]
  2. CLOZARIL [Suspect]
  3. ZOLOFT [Suspect]
  4. GEMFIBROZIL [Suspect]
     Dosage: 600MG TWICE PER DAY

REACTIONS (4)
  - ANGLE CLOSURE GLAUCOMA [None]
  - DRUG INTERACTION [None]
  - EYE PAIN [None]
  - IRIDOTOMY [None]
